FAERS Safety Report 9146232 (Version 1)
Quarter: 2013Q1

REPORT INFORMATION
  Report Type: Report from Study
  Country: US (occurrence: US)
  Receive Date: 20130307
  Receipt Date: 20130307
  Transmission Date: 20140127
  Serious: No
  Sender: FDA-Public Use
  Company Number: US-VERTEX PHARMACEUTICALS INC.-2013-003138

PATIENT
  Sex: Female
  Weight: 82 kg

DRUGS (13)
  1. VX-950 (TELAPREVIR) [Suspect]
     Indication: HEPATITIS C
     Dosage: 750 MG, TID
     Route: 048
     Dates: start: 2013
  2. RIBASPHERE [Suspect]
     Indication: HEPATITIS C
     Dosage: 600 MG, BID
     Route: 048
     Dates: start: 2013
  3. PEGASYS [Suspect]
     Indication: HEPATITIS C
     Dosage: 180 ?G, QW
     Route: 058
     Dates: start: 2013
  4. JANUVIA [Concomitant]
     Dosage: 1 DF, QD
     Route: 048
  5. SYNTHROID [Concomitant]
     Dosage: 1 DF, QD
     Route: 048
  6. DIOVAN [Concomitant]
     Dosage: 0.5 DF, QD
     Route: 048
  7. LANTUS [Concomitant]
     Dosage: 10 UT, QD
     Route: 058
  8. HYDROCHLOROTHIAZIDE [Concomitant]
     Dosage: 1 DF, QD
     Route: 048
  9. HYDROXYCHLOROQUINE [Concomitant]
     Dosage: 1 DF, BID
     Route: 048
  10. GLIPIZIDE [Concomitant]
     Dosage: 2 DF, BID
     Route: 048
  11. DILTIAZEM [Concomitant]
     Dosage: 1 DF, QD
     Route: 048
  12. AMITRIPTYLINE [Concomitant]
     Dosage: 1 DF, QD
     Route: 048
  13. VITAMIN D3 [Concomitant]
     Dosage: 1 DF, MONTHLY
     Route: 048

REACTIONS (3)
  - Fatigue [Unknown]
  - Dysgeusia [Unknown]
  - Nausea [Unknown]
